FAERS Safety Report 4790508-1 (Version None)
Quarter: 2005Q3

REPORT INFORMATION
  Report Type: 
  Country: None (occurrence: None)
  Receive Date: 20050914
  Receipt Date: 20041230
  Transmission Date: 20060218
  Serious: Yes (Death, Hospitalization)
  Sender: FDA-Public Use
  Company Number: 163-20785-05010020

PATIENT
  Age: 56 Year
  Sex: Female
  Weight: 90.2658 kg

DRUGS (3)
  1. THALOMID [Suspect]
     Indication: MULTIPLE MYELOMA
     Dosage: 100 MG, QHS, ORAL
     Route: 048
     Dates: start: 20041203, end: 20041227
  2. DOXIL [Suspect]
     Indication: MULTIPLE MYELOMA
     Dosage: 74 MG, KQ 28 DAYS, INTRAVENOUS
     Route: 042
     Dates: start: 20041203
  3. DEXAMETHASONE [Suspect]
     Indication: MULTIPLE MYELOMA
     Dosage: 40 MG, DAY 1-4 AND 15-18 OF EACH 28 CYCLE, ORAL
     Route: 048

REACTIONS (2)
  - DEATH [None]
  - PULMONARY EMBOLISM [None]
